FAERS Safety Report 14595755 (Version 3)
Quarter: 2019Q1

REPORT INFORMATION
  Report Type: Report from Study
  Country: JP (occurrence: JP)
  Receive Date: 20180303
  Receipt Date: 20190305
  Transmission Date: 20190417
  Serious: Yes (Death, Other)
  Sender: FDA-Public Use
  Company Number: JP-009507513-1802JPN002594J

PATIENT
  Age: 75 Year
  Sex: Male
  Weight: 66 kg

DRUGS (18)
  1. KALIMATE [Concomitant]
     Active Substance: CALCIUM POLYSTYRENE SULFONATE
     Indication: HYPERKALAEMIA
     Dosage: 1 PACKAGE, TID
     Route: 048
     Dates: start: 20180201, end: 20180207
  2. OXYCODONE [Concomitant]
     Active Substance: OXYCODONE
     Dosage: 3 DOSAGE FORM, TID
     Route: 048
     Dates: start: 20180221, end: 20180228
  3. ALLOPURINOL. [Concomitant]
     Active Substance: ALLOPURINOL
     Indication: GOUT
     Dosage: UNK
     Route: 065
     Dates: end: 20180220
  4. TAKECAB [Concomitant]
     Active Substance: VONOPRAZAN FUMURATE
     Indication: GASTROOESOPHAGEAL REFLUX DISEASE
     Dosage: 1 DOSAGE FORM, QD
     Route: 048
     Dates: start: 20150128, end: 20180228
  5. MAGNESIUM OXIDE. [Concomitant]
     Active Substance: MAGNESIUM OXIDE
     Indication: CONSTIPATION
     Dosage: 1 DOSAGE FORM, TID
     Route: 048
     Dates: start: 20180201, end: 20180207
  6. AMITIZA [Concomitant]
     Active Substance: LUBIPROSTONE
     Indication: CONSTIPATION
     Dosage: 1 DOSAGE FORM, BID
     Route: 048
     Dates: start: 20180216, end: 20180220
  7. CARBAZOCHROME SULFONATE NA [Concomitant]
     Indication: HAEMATURIA
     Dosage: 1 DOSAGE FORM, TID
     Route: 048
     Dates: start: 20180124, end: 20180125
  8. TRANEXAMIC ACID. [Concomitant]
     Active Substance: TRANEXAMIC ACID
     Indication: HAEMATURIA
     Dosage: 1 DOSAGE FORM, TID
     Route: 048
     Dates: start: 20180124, end: 20180125
  9. LOXOPROFEN [Concomitant]
     Active Substance: LOXOPROFEN
     Indication: CANCER PAIN
     Dosage: 1 DOSAGE FORM, TID
     Route: 048
     Dates: start: 20180124, end: 20180207
  10. TRANSAMIN [Concomitant]
     Active Substance: TRANEXAMIC ACID
     Indication: HAEMATURIA
     Dosage: 1 DOSAGE FORM, TID
     Route: 048
     Dates: start: 20180126, end: 20180228
  11. NAIXAN [Concomitant]
     Active Substance: NAPROXEN SODIUM
     Indication: TUMOUR ASSOCIATED FEVER
     Dosage: 1 DOSAGE FORM, TID
     Route: 048
     Dates: start: 20180220, end: 20180228
  12. KEYTRUDA [Suspect]
     Active Substance: PEMBROLIZUMAB
     Indication: TRANSITIONAL CELL CARCINOMA
     Dosage: 200 MILLIGRAM, Q3W
     Route: 041
     Dates: start: 20180123, end: 20180308
  13. TRAMAL [Concomitant]
     Active Substance: TRAMADOL
     Indication: CANCER PAIN
     Dosage: 1 DOSAGE FORM, QID
     Route: 048
     Dates: start: 20180128, end: 20180207
  14. OXYCODONE [Concomitant]
     Active Substance: OXYCODONE
     Dosage: 15 MILLIGRAM, BID
     Route: 048
     Dates: start: 20180217, end: 20180223
  15. ADONA [Concomitant]
     Indication: HAEMATURIA
     Dosage: 1 DOSAGE FORM, TID
     Route: 048
     Dates: start: 20180126, end: 20180728
  16. BELSOMRA [Concomitant]
     Active Substance: SUVOREXANT
     Indication: INSOMNIA
     Dosage: 1 DOSAGE FORM, QD
     Route: 048
     Dates: start: 20180128, end: 20180207
  17. OXYCODONE [Concomitant]
     Active Substance: OXYCODONE
     Indication: CANCER PAIN
     Dosage: 5 DOSAGE FORM, BID
     Route: 048
     Dates: start: 20180216, end: 20180217
  18. DRAMAMINE [Concomitant]
     Active Substance: DIMENHYDRINATE
     Indication: NAUSEA
     Dosage: 1 DOSAGE FORM, TID
     Route: 048
     Dates: start: 20180216, end: 20180228

REACTIONS (1)
  - Malignant neoplasm progression [Fatal]
